FAERS Safety Report 10569062 (Version 2)
Quarter: 2014Q4

REPORT INFORMATION
  Report Type: Report from Study
  Country: DE (occurrence: DE)
  Receive Date: 20141106
  Receipt Date: 20141212
  Transmission Date: 20150529
  Serious: Yes (Other)
  Sender: FDA-Public Use
  Company Number: PHHY2014DE143067

PATIENT
  Sex: Male
  Weight: 94 kg

DRUGS (1)
  1. ULTIBRO [Suspect]
     Active Substance: GLYCOPYRRONIUM\INDACATEROL
     Indication: CHRONIC OBSTRUCTIVE PULMONARY DISEASE
     Dosage: 1 DF, QD (85 ?G/ 43 ?G)
     Route: 055
     Dates: start: 20140710, end: 20140908

REACTIONS (3)
  - Forced expiratory volume decreased [Unknown]
  - Palpitations [Recovering/Resolving]
  - Forced vital capacity decreased [Unknown]

NARRATIVE: CASE EVENT DATE: 20140821
